FAERS Safety Report 7726911-7 (Version None)
Quarter: 2011Q3

REPORT INFORMATION
  Report Type: 
  Country: None (occurrence: None)
  Receive Date: 20110902
  Receipt Date: 20110824
  Transmission Date: 20111222
  Serious: Yes (Death, Life-Threatening)
  Sender: FDA-Public Use
  Company Number: AT-JNJFOC-20110811241

PATIENT
  Age: 83 Year
  Sex: Male

DRUGS (11)
  1. REOPRO [Suspect]
     Dosage: 7, 5 ML
     Route: 042
  2. HEPARIN [Suspect]
     Indication: ACUTE MYOCARDIAL INFARCTION
     Dosage: 4000 IE
     Route: 042
  3. HEPARIN [Suspect]
     Dosage: 3000
     Route: 042
  4. CLOPIDOGREL [Suspect]
     Indication: ATRIOVENTRICULAR BLOCK COMPLETE
     Route: 065
  5. ASPIRIN [Suspect]
     Indication: ACUTE MYOCARDIAL INFARCTION
     Route: 042
  6. MORPHINE [Concomitant]
     Indication: ACUTE MYOCARDIAL INFARCTION
     Route: 065
  7. SIMDAX [Concomitant]
     Route: 065
  8. REOPRO [Suspect]
     Indication: ACUTE MYOCARDIAL INFARCTION
     Dosage: 4,5 MG/50 WITH A RATE OF 3.0ML/ HOUR
     Route: 042
  9. ATROPINE [Concomitant]
     Indication: ATRIOVENTRICULAR BLOCK COMPLETE
     Route: 065
  10. ATENOLOL [Concomitant]
     Route: 065
  11. AMIODARONE HYDROCHLORIDE [Concomitant]
     Route: 065

REACTIONS (4)
  - INFECTION [None]
  - PULMONARY HAEMORRHAGE [None]
  - DRUG INEFFECTIVE [None]
  - PULMONARY OEDEMA [None]
